FAERS Safety Report 4416191-2 (Version None)
Quarter: 2004Q3

REPORT INFORMATION
  Report Type: 
  Country: None (occurrence: None)
  Receive Date: 20040805
  Receipt Date: 20040715
  Transmission Date: 20050211
  Serious: Yes (Other)
  Sender: FDA-Public Use
  Company Number: US-AMGEN-US083716

PATIENT
  Age: 44 Year
  Sex: Female

DRUGS (8)
  1. ENBREL [Suspect]
     Indication: AUTOIMMUNE DISORDER
     Route: 058
     Dates: start: 20030401, end: 20040601
  2. PLAQUENIL [Concomitant]
  3. METHOTREXATE [Concomitant]
  4. PREDNISONE [Concomitant]
  5. ASPIRIN [Concomitant]
  6. ALBUTEROL [Concomitant]
  7. LEUCOVORIN [Concomitant]
  8. ZOFRAN [Concomitant]

REACTIONS (1)
  - MULTIPLE SCLEROSIS [None]
